FAERS Safety Report 8054714 (Version 3)
Quarter: 2013Q1

REPORT INFORMATION
  Report Type: Spontaneous
  Country: US (occurrence: US)
  Receive Date: 20110726
  Receipt Date: 20130328
  Transmission Date: 20140127
  Serious: Yes (Other)
  Sender: FDA-Public Use
  Company Number: US-ROCHE-791077

PATIENT
  Sex: Female
  Weight: 104.42 kg

DRUGS (1)
  1. ACCUTANE [Suspect]
     Indication: ACNE
     Route: 065
     Dates: start: 1999, end: 2002

REACTIONS (8)
  - Irritable bowel syndrome [Unknown]
  - Gastrointestinal disorder [Unknown]
  - Colitis ulcerative [Unknown]
  - Depression [Unknown]
  - Rheumatoid arthritis [Unknown]
  - Glaucoma [Unknown]
  - Systemic lupus erythematosus [Unknown]
  - Osteoarthritis [Unknown]
